FAERS Safety Report 4352443-2 (Version None)
Quarter: 2004Q2

REPORT INFORMATION
  Report Type: 
  Country: None (occurrence: None)
  Receive Date: 20040409
  Receipt Date: 20040122
  Transmission Date: 20050107
  Serious: No
  Sender: FDA-Public Use
  Company Number: PHEH2003US10960

PATIENT
  Age: 33 Year
  Sex: Female

DRUGS (1)
  1. ELIDEL [Suspect]
     Indication: RASH
     Route: 061
     Dates: start: 20031120

REACTIONS (2)
  - APPLICATION SITE BURNING [None]
  - APPLICATION SITE DRYNESS [None]
